APPROVED DRUG PRODUCT: PROPRANOLOL HYDROCHLORIDE
Active Ingredient: PROPRANOLOL HYDROCHLORIDE
Strength: 90MG
Dosage Form/Route: TABLET;ORAL
Application: A071977 | Product #001
Applicant: ANI PHARMACEUTICALS INC
Approved: Apr 6, 1988 | RLD: No | RS: No | Type: DISCN